FAERS Safety Report 24972010 (Version 1)
Quarter: 2025Q1

REPORT INFORMATION
  Report Type: Spontaneous
  Country: US (occurrence: US)
  Receive Date: 20250214
  Receipt Date: 20250214
  Transmission Date: 20250409
  Serious: No
  Sender: GALDERMA
  Company Number: US-GALDERMA-US2025000288

PATIENT

DRUGS (5)
  1. PROACTIV MD ADAPALENE ACNE TREATMENT [Suspect]
     Active Substance: ADAPALENE
     Indication: Acne pustular
     Route: 061
     Dates: start: 202412
  2. COSMETICS [Concomitant]
     Active Substance: COSMETICS
     Indication: Product used for unknown indication
     Route: 061
     Dates: start: 202412
  3. PROACTIV CLEAN ACNE CLEARING HYDRATOR [Concomitant]
     Active Substance: SALICYLIC ACID
     Indication: Product used for unknown indication
     Route: 061
     Dates: start: 202412
  4. PROACTIV CLEAN MINERAL ACNE CLEANSER [Concomitant]
     Active Substance: SULFUR
     Indication: Product used for unknown indication
     Route: 061
     Dates: start: 202412
  5. PROACTIV SOLUTION BLACKHEAD DISSOLVING [Concomitant]
     Active Substance: SALICYLIC ACID
     Indication: Product used for unknown indication
     Route: 061
     Dates: start: 202412

REACTIONS (5)
  - Skin irritation [Recovering/Resolving]
  - Skin burning sensation [Recovering/Resolving]
  - Pruritus [Recovering/Resolving]
  - Dermatitis [Recovering/Resolving]
  - Paraesthesia [Recovering/Resolving]

NARRATIVE: CASE EVENT DATE: 20241201
